FAERS Safety Report 21307349 (Version 5)
Quarter: 2023Q1

REPORT INFORMATION
  Report Type: Report from Study
  Country: US (occurrence: US)
  Receive Date: 20220908
  Receipt Date: 20230320
  Transmission Date: 20230418
  Serious: Yes (Hospitalization)
  Sender: FDA-Public Use
  Company Number: US-PFIZER INC-PV202200059091

PATIENT
  Age: 63 Year
  Sex: Male
  Weight: 91.2 kg

DRUGS (15)
  1. VIAGRA [Interacting]
     Active Substance: SILDENAFIL CITRATE
     Indication: Erectile dysfunction
     Dosage: UNK, PRN
     Route: 048
     Dates: start: 202005, end: 202208
  2. TYVASO [Interacting]
     Active Substance: TREPROSTINIL
     Indication: Pulmonary arterial hypertension
     Dosage: UNK (START DATE: 13-AUG-2022)
     Dates: end: 202208
  3. TYVASO [Interacting]
     Active Substance: TREPROSTINIL
     Indication: Interstitial lung disease
     Dosage: 18 UG, 4X/DAY (3BREATHS, FOUR TIMES A DAY)
     Dates: start: 202208
  4. TYVASO [Interacting]
     Active Substance: TREPROSTINIL
     Dosage: 72 MICROGRAM, QID (12 BREATHS))
     Dates: start: 2022
  5. TYVASO [Interacting]
     Active Substance: TREPROSTINIL
     Dosage: 54 MICROGRAM, QID (9 BREATHS)
     Dates: start: 2022
  6. TYVASO [Interacting]
     Active Substance: TREPROSTINIL
     Dosage: UNK (AUG-2022)
  7. FLUTICASONE PROPIONATE [Concomitant]
     Active Substance: FLUTICASONE PROPIONATE
     Dosage: UNK
     Route: 065
  8. ALBUTEROL [Concomitant]
     Active Substance: ALBUTEROL
     Dosage: UNK
     Route: 065
  9. AZATHIOPRINE [Concomitant]
     Active Substance: AZATHIOPRINE
     Dosage: UNK
     Route: 065
  10. PREDNISONE [Concomitant]
     Active Substance: PREDNISONE
     Dosage: UNK
     Route: 065
  11. ATORVASTATIN CALCIUM [Concomitant]
     Active Substance: ATORVASTATIN CALCIUM
     Dosage: UNK
     Route: 065
  12. LASIX [Concomitant]
     Active Substance: FUROSEMIDE
     Dosage: UNK
     Route: 065
  13. SPIRONOLACTONE [Concomitant]
     Active Substance: SPIRONOLACTONE
     Dosage: UNK
     Route: 065
  14. LOSARTAN [Concomitant]
     Active Substance: LOSARTAN
     Dosage: UNK
     Route: 065
  15. METOPROLOL [Concomitant]
     Active Substance: METOPROLOL
     Dosage: UNK
     Route: 065

REACTIONS (6)
  - Hyperhidrosis [Recovered/Resolved]
  - Fatigue [Recovered/Resolved]
  - Drug interaction [Recovered/Resolved]
  - Hypotension [Recovered/Resolved]
  - Dizziness postural [Recovered/Resolved]
  - Product administration error [Unknown]

NARRATIVE: CASE EVENT DATE: 20220801
